FAERS Safety Report 7642426-9 (Version None)
Quarter: 2011Q3

REPORT INFORMATION
  Report Type: 
  Country: None (occurrence: None)
  Receive Date: 20110728
  Receipt Date: 20101129
  Transmission Date: 20111222
  Serious: No
  Sender: FDA-Public Use
  Company Number: US-MYLANLABS-2010S1021925

PATIENT
  Age: 68 Year
  Sex: Female

DRUGS (5)
  1. VITAMIN B6 [Concomitant]
     Route: 048
  2. VITAMIN D [Concomitant]
     Route: 048
  3. CHOLEST-OFF [Concomitant]
     Route: 048
  4. CALCIUM ACETATE [Concomitant]
     Route: 048
  5. LEVOTHYROXINE SODIUM [Suspect]
     Indication: HYPOTHYROIDISM
     Route: 048
     Dates: start: 19810101

REACTIONS (1)
  - HAIR DISORDER [None]
